FAERS Safety Report 23225595 (Version 1)
Quarter: 2023Q4

REPORT INFORMATION
  Report Type: Spontaneous
  Country: CN (occurrence: None)
  Receive Date: 20231124
  Receipt Date: 20231124
  Transmission Date: 20240109
  Serious: Yes (Death, Other)
  Sender: FDA-Public Use
  Company Number: CN-ROCHE-3459910

PATIENT

DRUGS (3)
  1. HERCEPTIN [Suspect]
     Active Substance: TRASTUZUMAB
     Indication: Bile duct adenocarcinoma
     Dosage: FOLLOWED BY 6 MG/KG ON DAY 1 OF EACH CYCLE
     Route: 041
  2. GEMCITABINE [Suspect]
     Active Substance: GEMCITABINE
     Indication: Bile duct adenocarcinoma
     Dosage: DAY 1, 8
     Route: 041
  3. CISPLATIN [Suspect]
     Active Substance: CISPLATIN
     Indication: Bile duct adenocarcinoma
     Dosage: DAY 1, 8
     Route: 041

REACTIONS (9)
  - Off label use [Unknown]
  - Death [Fatal]
  - Anaemia [Unknown]
  - Neutropenia [Unknown]
  - Transaminases increased [Unknown]
  - Fatigue [Unknown]
  - Ejection fraction decreased [Unknown]
  - Febrile neutropenia [Unknown]
  - Thrombocytopenia [Unknown]
